FAERS Safety Report 6877418-0 (Version None)
Quarter: 2010Q3

REPORT INFORMATION
  Report Type: 
  Country: None (occurrence: None)
  Receive Date: 20100727
  Receipt Date: 20100302
  Transmission Date: 20110219
  Serious: No
  Sender: FDA-Public Use
  Company Number: US-ABBOTT-10P-163-0624137-00

PATIENT
  Sex: Female
  Weight: 79.45 kg

DRUGS (4)
  1. SYNTHROID [Suspect]
     Indication: HYPOTHYROIDISM
     Dosage: M,T,W,TH,SAT,SUN 200 MCG FRIDAYS 300MC
     Route: 048
  2. EVAMIST SPRAY [Concomitant]
     Indication: MENOPAUSE
     Route: 061
  3. ALLEGRA D 24 HOUR [Concomitant]
     Indication: SEASONAL ALLERGY
  4. PROVERA [Concomitant]
     Indication: PRODUCT USED FOR UNKNOWN INDICATION

REACTIONS (1)
  - COELIAC DISEASE [None]
